FAERS Safety Report 24352020 (Version 1)
Quarter: 2024Q3

REPORT INFORMATION
  Report Type: Report from Study
  Country: EG (occurrence: EG)
  Receive Date: 20240923
  Receipt Date: 20240923
  Transmission Date: 20241017
  Serious: No
  Sender: ROCHE
  Company Number: EG-ROCHE-3040014

PATIENT
  Age: 45 Year
  Sex: Female

DRUGS (19)
  1. HERCEPTIN [Suspect]
     Active Substance: TRASTUZUMAB
     Indication: Breast cancer metastatic
     Route: 041
     Dates: start: 20190324, end: 20190414
  2. HERCEPTIN [Suspect]
     Active Substance: TRASTUZUMAB
     Indication: Breast cancer metastatic
     Route: 058
     Dates: start: 20190513, end: 20200901
  3. XELODA [Suspect]
     Active Substance: CAPECITABINE
     Indication: Breast cancer metastatic
     Dosage: 2 WEEKS EVERY 3 WEEK
     Route: 048
     Dates: start: 20200930, end: 20211017
  4. PARAPLATIN [Suspect]
     Active Substance: CARBOPLATIN
     Indication: Breast cancer metastatic
     Dosage: DOSE 5
     Route: 042
     Dates: start: 20211110, end: 20221220
  5. GEMZAR [Suspect]
     Active Substance: GEMCITABINE HYDROCHLORIDE
     Indication: Breast cancer metastatic
     Dosage: DAY1 AND DAY8 EVERY 21 DAYS
     Route: 042
     Dates: start: 20211110, end: 20221220
  6. TAXOL [Suspect]
     Active Substance: PACLITAXEL
     Indication: Breast cancer metastatic
     Route: 042
     Dates: start: 20190324, end: 20190908
  7. ZOLEDRONIC ACID [Suspect]
     Active Substance: ZOLEDRONIC ACID
     Indication: Breast cancer metastatic
     Route: 042
     Dates: start: 20190414
  8. TYKERB [Suspect]
     Active Substance: LAPATINIB DITOSYLATE
     Indication: Breast cancer metastatic
     Route: 048
     Dates: start: 20200930, end: 20211017
  9. UREA [Concomitant]
     Active Substance: UREA
     Route: 061
     Dates: start: 20201203, end: 20201217
  10. UREA [Concomitant]
     Active Substance: UREA
     Route: 061
     Dates: start: 20210425, end: 20210501
  11. VITAMIN B1+B6+B12 [Concomitant]
     Route: 030
     Dates: start: 20210425, end: 20210523
  12. IBUPROFEN [Concomitant]
     Active Substance: IBUPROFEN
     Indication: Bone pain
     Route: 048
     Dates: start: 20211211, end: 20211224
  13. CELECOXIB [Concomitant]
     Active Substance: CELECOXIB
     Route: 048
     Dates: start: 20220906, end: 20220915
  14. AMOXICILLIN\CLAVULANIC ACID [Concomitant]
     Active Substance: AMOXICILLIN\CLAVULANIC ACID
     Route: 048
     Dates: start: 20220906, end: 20220912
  15. AMOXICILLIN\CLAVULANIC ACID [Concomitant]
     Active Substance: AMOXICILLIN\CLAVULANIC ACID
     Route: 048
     Dates: start: 20221012, end: 20221018
  16. CHYMOTRYPSIN [Concomitant]
     Active Substance: CHYMOTRYPSIN
     Dosage: 1 TABLET
     Route: 048
     Dates: start: 20220906, end: 20220912
  17. CHYMOTRYPSIN [Concomitant]
     Active Substance: CHYMOTRYPSIN
     Dosage: 1 TABLET
     Route: 048
     Dates: start: 20221010, end: 20221018
  18. ACETAMINOPHEN [Concomitant]
     Active Substance: ACETAMINOPHEN
     Route: 048
     Dates: start: 20221012, end: 20221018
  19. METRONIDAZOLE [Concomitant]
     Active Substance: METRONIDAZOLE
     Route: 048
     Dates: start: 20221012, end: 20221018

REACTIONS (4)
  - Bone pain [Unknown]
  - Chest pain [Unknown]
  - Fatigue [Unknown]
  - Abdominal discomfort [Unknown]

NARRATIVE: CASE EVENT DATE: 20211118
